FAERS Safety Report 6618880-8 (Version None)
Quarter: 2010Q1

REPORT INFORMATION
  Report Type: 
  Country: None (occurrence: None)
  Receive Date: 20100308
  Receipt Date: 20100302
  Transmission Date: 20100710
  Serious: Yes (Other)
  Sender: FDA-Public Use
  Company Number: FR-WYE-G05670310

PATIENT
  Sex: Female
  Weight: 65 kg

DRUGS (5)
  1. EFFEXOR [Suspect]
     Route: 048
     Dates: start: 20100111, end: 20100225
  2. EFFEXOR [Suspect]
     Route: 048
     Dates: start: 20100226, end: 20100301
  3. COUMADIN [Concomitant]
     Indication: PROPHYLAXIS
     Dosage: UNKNOWN
     Dates: start: 20091201
  4. SERESTA [Suspect]
     Route: 048
     Dates: start: 19730101, end: 20091206
  5. SERESTA [Suspect]
     Route: 048
     Dates: start: 20091207, end: 20100301

REACTIONS (8)
  - ANXIETY [None]
  - CHRONIC OBSTRUCTIVE PULMONARY DISEASE [None]
  - COMA [None]
  - CONDITION AGGRAVATED [None]
  - COUGH [None]
  - DYSPNOEA [None]
  - IRRITABILITY [None]
  - SOMNOLENCE [None]
